FAERS Safety Report 17892794 (Version 2)
Quarter: 2021Q2

REPORT INFORMATION
  Report Type: Spontaneous
  Country: US (occurrence: US)
  Receive Date: 20200613
  Receipt Date: 20210629
  Transmission Date: 20210717
  Serious: No
  Sender: FDA-Public Use
  Company Number: US-TEVA-2020-US-1247863

PATIENT

DRUGS (1)
  1. ARMODAFINIL SANDOZ [Suspect]
     Active Substance: ARMODAFINIL
     Route: 065

REACTIONS (7)
  - Ulcer [Unknown]
  - Hypersensitivity [Unknown]
  - Feeling abnormal [Unknown]
  - Product substitution issue [Unknown]
  - Rash [Unknown]
  - Blister [Unknown]
  - Drug effect faster than expected [Unknown]
